FAERS Safety Report 23367121 (Version 2)
Quarter: 2024Q1

REPORT INFORMATION
  Report Type: Spontaneous
  Country: CN (occurrence: CN)
  Receive Date: 20240104
  Receipt Date: 20240107
  Transmission Date: 20240410
  Serious: Yes (Hospitalization, Disabling, Other)
  Sender: FDA-Public Use
  Company Number: CN-GLAXOSMITHKLINE-CNCH2023APC066686

PATIENT
  Age: 77 Year
  Sex: Male

DRUGS (2)
  1. VOLTAREN [Suspect]
     Active Substance: DICLOFENAC SODIUM
     Indication: Gout
     Dosage: 75 MG, QD
     Route: 048
     Dates: start: 20231204, end: 20231216
  2. RIVAROXABAN [Suspect]
     Active Substance: RIVAROXABAN
     Indication: Anticoagulant therapy
     Dosage: 10 MG, QD
     Route: 048
     Dates: start: 20231201, end: 20231216

REACTIONS (10)
  - Upper gastrointestinal haemorrhage [Recovering/Resolving]
  - Duodenal ulcer [Recovering/Resolving]
  - Arteriosclerosis coronary artery [Recovering/Resolving]
  - Gastric ulcer haemorrhage [Recovering/Resolving]
  - Peptic ulcer haemorrhage [Recovering/Resolving]
  - Gastric ulcer [Recovering/Resolving]
  - Gout [Recovering/Resolving]
  - Anaemia [Recovering/Resolving]
  - Hypertension [Recovering/Resolving]
  - Hypoproteinaemia [Recovering/Resolving]

NARRATIVE: CASE EVENT DATE: 20231201
